FAERS Safety Report 8447092-0 (Version None)
Quarter: 2012Q2

REPORT INFORMATION
  Report Type: 
  Country: None (occurrence: None)
  Receive Date: 20120619
  Receipt Date: 20120612
  Transmission Date: 20120825
  Serious: No
  Sender: FDA-Public Use
  Company Number: US-PFIZER INC-2012111027

PATIENT
  Sex: Female

DRUGS (3)
  1. DYAZIDE [Concomitant]
     Indication: HYPERTENSION
     Dosage: UNK
     Dates: start: 20050111, end: 20050201
  2. NORVASC [Suspect]
     Indication: HYPERTENSION
     Dosage: 2.5 MG, DAILY
     Route: 048
     Dates: start: 20050111, end: 20050121
  3. LOVASTATIN [Suspect]
     Indication: LIPIDS INCREASED
     Dosage: 10 D/DAILY
     Route: 048
     Dates: start: 20050406, end: 20050408

REACTIONS (5)
  - GASTROINTESTINAL DISORDER [None]
  - FLATULENCE [None]
  - DRUG HYPERSENSITIVITY [None]
  - PALPITATIONS [None]
  - DIARRHOEA [None]
